FAERS Safety Report 24838535 (Version 1)
Quarter: 2025Q1

REPORT INFORMATION
  Report Type: Spontaneous
  Country: FR (occurrence: FR)
  Receive Date: 20250113
  Receipt Date: 20250113
  Transmission Date: 20250408
  Serious: Yes (Hospitalization, Other)
  Sender: MERCK
  Company Number: None

PATIENT
  Age: 43 Year
  Sex: Female
  Weight: 88 kg

DRUGS (39)
  1. ZINPLAVA [Suspect]
     Active Substance: BEZLOTOXUMAB
     Indication: Clostridium difficile colitis
     Route: 042
     Dates: start: 20231210, end: 20231210
  2. METHOTREXATE [Suspect]
     Active Substance: METHOTREXATE
     Indication: Prophylaxis against graft versus host disease
     Route: 042
     Dates: start: 20231207, end: 20231207
  3. METHOTREXATE [Suspect]
     Active Substance: METHOTREXATE
     Dosage: 30.75 MILLIGRAM, QD
     Route: 042
     Dates: start: 20231209, end: 20231209
  4. METHOTREXATE [Suspect]
     Active Substance: METHOTREXATE
     Dosage: 20.5 MILLIGRAM, QD
     Route: 042
     Dates: start: 20231212, end: 20231212
  5. GRAFALON [Suspect]
     Active Substance: LAPINE T-LYMPHOCYTE IMMUNE GLOBULIN
     Indication: Prophylaxis against graft versus host disease
     Route: 042
     Dates: start: 20231203, end: 20231205
  6. CHLORPROMAZINE HYDROCHLORIDE [Suspect]
     Active Substance: CHLORPROMAZINE HYDROCHLORIDE
     Indication: Vomiting
     Route: 042
     Dates: start: 20231210, end: 20231215
  7. METOCLOPRAMIDE HYDROCHLORIDE [Suspect]
     Active Substance: METOCLOPRAMIDE HYDROCHLORIDE
     Indication: Vomiting
     Route: 042
     Dates: start: 20231128, end: 20231215
  8. TREOSULFAN [Concomitant]
     Active Substance: TREOSULFAN
     Indication: Bone marrow conditioning regimen
     Route: 042
     Dates: start: 20231130, end: 20231202
  9. FLUDARABINE PHOSPHATE [Concomitant]
     Active Substance: FLUDARABINE PHOSPHATE
     Indication: Bone marrow conditioning regimen
     Route: 042
     Dates: start: 20231129, end: 20231203
  10. CYCLOSPORINE [Concomitant]
     Active Substance: CYCLOSPORINE
     Indication: Prophylaxis against transplant rejection
     Route: 042
     Dates: start: 20231205, end: 20231212
  11. CYCLOSPORINE [Concomitant]
     Active Substance: CYCLOSPORINE
     Dosage: 67.5 MILLIGRAM, QD
     Route: 042
     Dates: start: 20231212, end: 20231214
  12. CYCLOSPORINE [Concomitant]
     Active Substance: CYCLOSPORINE
     Dosage: 55 MILLIGRAM, QD
     Route: 042
     Dates: start: 20231214, end: 20231216
  13. CYCLOSPORINE [Concomitant]
     Active Substance: CYCLOSPORINE
     Dosage: 25 MILLIGRAM, QD
     Route: 042
     Dates: start: 20231216, end: 20231219
  14. CYCLOSPORINE [Concomitant]
     Active Substance: CYCLOSPORINE
     Dosage: 50 MILLIGRAM, QD
     Route: 042
     Dates: start: 20231219, end: 20231227
  15. CYCLOSPORINE [Concomitant]
     Active Substance: CYCLOSPORINE
     Dosage: 40 MILLIGRAM, QD
     Route: 042
     Dates: start: 20231227, end: 20240109
  16. CYCLOSPORINE [Concomitant]
     Active Substance: CYCLOSPORINE
     Dosage: 50 MILLIGRAM, QD
     Route: 042
     Dates: start: 20240109, end: 20240112
  17. CYCLOSPORINE [Concomitant]
     Active Substance: CYCLOSPORINE
     Dosage: 65 MILLIGRAM, QD
     Route: 042
     Dates: start: 20240112, end: 20240119
  18. CYCLOSPORINE [Concomitant]
     Active Substance: CYCLOSPORINE
     Dosage: 100 MILLIGRAM, QD
     Route: 042
     Dates: start: 20240119, end: 20240124
  19. SOLU-MEDROL [Concomitant]
     Active Substance: METHYLPREDNISOLONE SODIUM SUCCINATE
     Indication: Prophylaxis against transplant rejection
     Route: 042
     Dates: start: 20231203, end: 20231205
  20. VALACYCLOVIR [Concomitant]
     Active Substance: VALACYCLOVIR HYDROCHLORIDE
     Indication: Opportunistic infection prophylaxis
     Route: 048
     Dates: start: 20231128, end: 20231215
  21. VALACYCLOVIR [Concomitant]
     Active Substance: VALACYCLOVIR HYDROCHLORIDE
     Dosage: 1000 MILLIGRAM, QD
     Route: 048
     Dates: start: 20240111
  22. POSACONAZOLE [Concomitant]
     Active Substance: POSACONAZOLE
     Indication: Opportunistic infection prophylaxis
     Dosage: 300 MILLIGRAM, QD
     Route: 048
     Dates: start: 20231206, end: 20231215
  23. POSACONAZOLE [Concomitant]
     Active Substance: POSACONAZOLE
     Dosage: 300 MILLIGRAM, QD
     Route: 048
     Dates: start: 20231217, end: 20231219
  24. POSACONAZOLE [Concomitant]
     Active Substance: POSACONAZOLE
     Dosage: 400 MILLIGRAM, QD
     Route: 048
     Dates: start: 20231220
  25. PREVYMIS [Concomitant]
     Active Substance: LETERMOVIR
     Indication: Opportunistic infection prophylaxis
     Dosage: 480 MILLIGRAM, QD
     Route: 048
     Dates: start: 20231206, end: 20231215
  26. PREVYMIS [Concomitant]
     Active Substance: LETERMOVIR
     Dosage: 480 MILLIGRAM, QD
     Route: 048
     Dates: start: 20231218
  27. CEFEPIME [Concomitant]
     Active Substance: CEFEPIME HYDROCHLORIDE
     Indication: Febrile neutropenia
     Dosage: 6000 MILLIGRAM, QD
     Route: 042
     Dates: start: 20231203, end: 20231208
  28. CEFEPIME [Concomitant]
     Active Substance: CEFEPIME HYDROCHLORIDE
     Dosage: 8000 MILLIGRAM, QD
     Route: 042
     Dates: start: 20231208, end: 20231214
  29. CEFEPIME [Concomitant]
     Active Substance: CEFEPIME HYDROCHLORIDE
     Dosage: 6000 MILLIGRAM, QD
     Route: 042
     Dates: start: 20231217, end: 20231218
  30. METRONIDAZOLE [Concomitant]
     Active Substance: METRONIDAZOLE
     Indication: Gastrointestinal infection
     Route: 042
     Dates: start: 20231208, end: 20231215
  31. METRONIDAZOLE [Concomitant]
     Active Substance: METRONIDAZOLE
     Dosage: 500 MILLIGRAM, Q8H
     Route: 042
     Dates: start: 20231221, end: 20231228
  32. FIDAXOMICIN [Concomitant]
     Active Substance: FIDAXOMICIN
     Indication: Clostridium difficile colitis
     Route: 042
     Dates: start: 20231209, end: 20231228
  33. RACECADOTRIL ARROW [Concomitant]
     Indication: Diarrhoea
     Route: 048
     Dates: start: 20231203, end: 20231204
  34. RACECADOTRIL ARROW [Concomitant]
     Dosage: 200 MILLIGRAM, QD
     Route: 048
     Dates: start: 20231207, end: 20231214
  35. RACECADOTRIL ARROW [Concomitant]
     Dosage: 200 MILLIGRAM, QD
     Route: 048
     Dates: start: 20231218, end: 20231220
  36. ONDANSETRON [Concomitant]
     Active Substance: ONDANSETRON
     Indication: Vomiting
     Route: 042
     Dates: start: 20231207, end: 20231207
  37. ONDANSETRON [Concomitant]
     Active Substance: ONDANSETRON
     Dosage: 24 MILLIGRAM, QD
     Route: 042
     Dates: start: 20231208, end: 20231226
  38. PANTOPRAZOLE [Concomitant]
     Active Substance: PANTOPRAZOLE
     Indication: Dyspepsia
     Route: 048
     Dates: start: 20231128
  39. ACETAMINOPHEN [Concomitant]
     Active Substance: ACETAMINOPHEN
     Indication: Pain
     Route: 048
     Dates: start: 20231130, end: 20240106

REACTIONS (1)
  - Pancreatitis necrotising [Recovered/Resolved]

NARRATIVE: CASE EVENT DATE: 20231215
